FAERS Safety Report 21164340 (Version 1)
Quarter: 2022Q3

REPORT INFORMATION
  Report Type: Spontaneous
  Country: US (occurrence: US)
  Receive Date: 20220803
  Receipt Date: 20220803
  Transmission Date: 20221027
  Serious: Yes (Other)
  Sender: FDA-Public Use
  Company Number: US-CELGENEKK-163-21880-11072852

PATIENT
  Age: 35 Year
  Sex: Female

DRUGS (3)
  1. REVLIMID [Suspect]
     Active Substance: LENALIDOMIDE
     Indication: Plasma cell myeloma
     Dosage: FREQUENCY TEXT: QOD, D1-14 OF 28 DAY CYCLE
     Route: 048
     Dates: start: 201002, end: 2011
  2. VELCADE [Concomitant]
     Active Substance: BORTEZOMIB
     Indication: Plasma cell myeloma
     Route: 065
     Dates: start: 201002
  3. DEXAMETHASONE [Concomitant]
     Active Substance: DEXAMETHASONE
     Indication: Plasma cell myeloma
     Route: 065
     Dates: start: 201002

REACTIONS (1)
  - Maternal exposure during pregnancy [Recovered/Resolved]
